FAERS Safety Report 9126940 (Version 2)
Quarter: 2013Q2

REPORT INFORMATION
  Report Type: Spontaneous
  Country: US (occurrence: US)
  Receive Date: 20130228
  Receipt Date: 20130422
  Transmission Date: 20140414
  Serious: Yes (Hospitalization)
  Sender: FDA-Public Use
  Company Number: US-BAYER-2013-025576

PATIENT
  Age: 41 Year
  Sex: Female
  Weight: 66.21 kg

DRUGS (4)
  1. YASMIN [Suspect]
     Indication: CONTRACEPTION
  2. YAZ [Suspect]
  3. TOPAMAX [Concomitant]
     Indication: MIGRAINE
  4. LEXAPRO [Concomitant]
     Indication: DEPRESSION

REACTIONS (1)
  - Pulmonary embolism [None]
